FAERS Safety Report 20019759 (Version 1)
Quarter: 2021Q4

REPORT INFORMATION
  Report Type: Spontaneous
  Country: FR (occurrence: None)
  Receive Date: 20211101
  Receipt Date: 20211101
  Transmission Date: 20220303
  Serious: Yes (Hospitalization)
  Sender: FDA-Public Use
  Company Number: None

PATIENT
  Age: 53 Year
  Sex: Female
  Weight: 65 kg

DRUGS (16)
  1. PROPOFOL [Suspect]
     Active Substance: PROPOFOL
     Indication: General anaesthesia
     Dosage: 1600 MG AU TOTAL = 1600 MG IN TOTAL
     Route: 041
     Dates: start: 20210725, end: 20210726
  2. ERYTHROMYCIN ETHYLSUCCINATE [Suspect]
     Active Substance: ERYTHROMYCIN ETHYLSUCCINATE
     Indication: Oesophageal varices haemorrhage
     Dosage: DOSE UNIQUE DE 250 MG = UNIQUE DOSE OF 250MG
     Route: 041
     Dates: start: 20210724, end: 20210724
  3. OCTREOTIDE ACETATE [Suspect]
     Active Substance: OCTREOTIDE ACETATE
     Indication: Oesophageal varices haemorrhage
     Route: 041
     Dates: start: 20210724, end: 20210727
  4. SUFENTANIL [Suspect]
     Active Substance: SUFENTANIL
     Indication: General anaesthesia
     Dosage: 90 MG AU TOTAL = 90MG IN TOTAL
     Route: 041
     Dates: start: 20210725, end: 20210726
  5. AMITRIPTYLINE HYDROCHLORIDE [Suspect]
     Active Substance: AMITRIPTYLINE HYDROCHLORIDE
     Indication: Depression
     Route: 048
     Dates: end: 20210725
  6. PANTOPRAZOLE SODIUM [Suspect]
     Active Substance: PANTOPRAZOLE SODIUM
     Indication: Oesophageal varices haemorrhage
     Route: 041
     Dates: start: 20210724, end: 20210727
  7. PANTOPRAZOLE SODIUM [Suspect]
     Active Substance: PANTOPRAZOLE SODIUM
     Dosage: 80 MG BOLUS
     Route: 040
     Dates: start: 20210724, end: 20210724
  8. GALACTOSE/LACTULOSE/LACTOSE [Concomitant]
     Indication: Hepatic encephalopathy
     Dosage: 3 SACHETS 3 FOIS PAR JOUR = 3 SACHET 3 TIMES PER DAY
     Route: 048
     Dates: start: 20210725
  9. ALBUMIN HUMAN [Concomitant]
     Active Substance: ALBUMIN HUMAN
     Indication: Hepatic encephalopathy
     Route: 041
     Dates: start: 20210725, end: 20210726
  10. ALBUMIN HUMAN [Concomitant]
     Active Substance: ALBUMIN HUMAN
     Route: 041
     Dates: start: 20210726, end: 20210727
  11. CEFTRIAXONE SODIUM [Concomitant]
     Active Substance: CEFTRIAXONE SODIUM
     Indication: Hepatic encephalopathy
     Route: 041
     Dates: start: 20210724, end: 20210730
  12. BROMAZEPAM [Concomitant]
     Active Substance: BROMAZEPAM
     Indication: Anxiety
     Dates: end: 20210724
  13. NOREPINEPHRINE BITARTRATE [Concomitant]
     Active Substance: NOREPINEPHRINE BITARTRATE
     Indication: Hypotension
     Dosage: 0,2 UG/KG/MIN
     Route: 041
     Dates: start: 20210725, end: 20210726
  14. NEFOPAM HYDROCHLORIDE [Concomitant]
     Active Substance: NEFOPAM HYDROCHLORIDE
     Indication: Abdominal pain
     Dosage: 20 MG EN DOSE UNIQUE = 20MG IN UNIQUE DOSE
     Route: 041
     Dates: start: 20210724, end: 20210724
  15. GLICLAZIDE [Concomitant]
     Active Substance: GLICLAZIDE
     Indication: Type 2 diabetes mellitus
     Route: 048
     Dates: end: 20210724
  16. RIFAXIMIN [Concomitant]
     Active Substance: RIFAXIMIN
     Indication: Hepatic encephalopathy
     Dosage: 550 MG 2 FOIS/JOUR = 550MG TWICE PER DAY
     Route: 048
     Dates: start: 20210725

REACTIONS (2)
  - Electrocardiogram QT prolonged [Recovered/Resolved]
  - Torsade de pointes [Recovered/Resolved]

NARRATIVE: CASE EVENT DATE: 20210727
